FAERS Safety Report 9789055 (Version 1)
Quarter: 2013Q4

REPORT INFORMATION
  Report Type: Spontaneous
  Country: US (occurrence: US)
  Receive Date: 20131230
  Receipt Date: 20131230
  Transmission Date: 20140711
  Serious: No
  Sender: FDA-Public Use
  Company Number: US-ASTRAZENECA-2013SE84782

PATIENT
  Age: 63 Year
  Sex: Female
  Weight: 54.4 kg

DRUGS (10)
  1. BRILINTA [Suspect]
     Indication: STENT PLACEMENT
     Route: 048
     Dates: start: 20131112
  2. BRILINTA [Suspect]
     Indication: CATHETERISATION CARDIAC
     Route: 048
     Dates: start: 20131112
  3. TOPROL-XL [Suspect]
     Indication: HYPERTENSION
     Route: 048
  4. TOPROL-XL [Suspect]
     Indication: HYPERTENSION
     Dosage: GENERAL
     Route: 048
  5. VIT D2 [Concomitant]
  6. AMLODIPINE [Concomitant]
     Dosage: 5 MG
  7. ISOSORBIDE [Concomitant]
     Dosage: 30 MG
  8. ATORVASTATIN [Concomitant]
     Dosage: 20 MG
  9. VALTREX [Concomitant]
     Indication: HERPES ZOSTER
     Dosage: 500 MG
  10. ASPIRIN [Concomitant]

REACTIONS (3)
  - Chest discomfort [Not Recovered/Not Resolved]
  - Discomfort [Unknown]
  - Dyspnoea [Not Recovered/Not Resolved]
